FAERS Safety Report 15733479 (Version 2)
Quarter: 2018Q4

REPORT INFORMATION
  Report Type: Spontaneous
  Country: FR (occurrence: FR)
  Receive Date: 20181218
  Receipt Date: 20181224
  Transmission Date: 20190205
  Serious: Yes (Hospitalization, Other)
  Sender: FDA-Public Use
  Company Number: FR-TEVA-2018-FR-986935

PATIENT
  Age: 69 Year
  Sex: Female

DRUGS (1)
  1. CIPROFLOXACINE TEVA 500 MG [Suspect]
     Active Substance: CIPROFLOXACIN
     Dosage: 1000 MILLIGRAM DAILY;  ONE TABLET IN THE MORNING AND IN THE EVENING DURING TEN DAYS
     Route: 065

REACTIONS (3)
  - Pain in extremity [Not Recovered/Not Resolved]
  - Pain [Not Recovered/Not Resolved]
  - Monoplegia [Not Recovered/Not Resolved]
